FAERS Safety Report 21029650 (Version 3)
Quarter: 2023Q4

REPORT INFORMATION
  Report Type: Spontaneous
  Country: JP (occurrence: JP)
  Receive Date: 20220630
  Receipt Date: 20231010
  Transmission Date: 20240110
  Serious: Yes (Death, Life-Threatening, Hospitalization, Other)
  Sender: FDA-Public Use
  Company Number: JP-JAZZ-2022-JP-021884

PATIENT
  Age: 44 Year
  Sex: Male

DRUGS (3)
  1. DEFITELIO [Suspect]
     Active Substance: DEFIBROTIDE SODIUM
     Indication: Venoocclusive liver disease
     Dosage: 1600 MILLIGRAM, QD
     Route: 042
     Dates: start: 20220616, end: 20220701
  2. NAFAMOSTAT MESYLATE [Concomitant]
     Active Substance: NAFAMOSTAT MESYLATE
     Indication: Dialysis
     Dosage: UNK
     Dates: start: 20220623, end: 20220701
  3. PLATELETS [Concomitant]
     Active Substance: HUMAN PLATELET, ALLOGENIC
     Indication: Haematochezia
     Dosage: UNK
     Dates: start: 20220624

REACTIONS (6)
  - Haemophagocytic lymphohistiocytosis [Fatal]
  - Venoocclusive liver disease [Unknown]
  - Condition aggravated [Unknown]
  - Renal impairment [Unknown]
  - Dialysis [Unknown]
  - Haematochezia [Recovered/Resolved]

NARRATIVE: CASE EVENT DATE: 20220623
